FAERS Safety Report 5129994-6 (Version None)
Quarter: 2006Q4

REPORT INFORMATION
  Report Type: 
  Country: None (occurrence: None)
  Receive Date: 20061013
  Receipt Date: 20061002
  Transmission Date: 20070319
  Serious: Yes (Other)
  Sender: FDA-Public Use
  Company Number: 2006119424

PATIENT
  Sex: Female
  Weight: 49.1 kg

DRUGS (10)
  1. PREGABALIN ( PREGABALIN) [Suspect]
     Indication: NEURALGIA
     Dosage: ORAL
     Route: 048
     Dates: start: 20060613, end: 20060615
  2. AMITRIPTYLINE HCL [Concomitant]
  3. ASPIRIN [Concomitant]
  4. BECLOMETHASONE DIPROPIONATE [Concomitant]
  5. BENDROFLUAZIDE (BENDROFLUMETHIAZIDE) [Concomitant]
  6. DILTIAZEM HCL [Concomitant]
  7. DIPYRIDAMOLE [Concomitant]
  8. IPRATROPIUM BROMIDE [Concomitant]
  9. ISOSORBIDE MONONITRATE [Concomitant]
  10. PRAVASTATIN [Concomitant]

REACTIONS (2)
  - CEREBELLAR ATAXIA [None]
  - NERVOUS SYSTEM DISORDER [None]
